FAERS Safety Report 15729695 (Version 1)
Quarter: 2018Q4

REPORT INFORMATION
  Report Type: Report from Study
  Country: HU (occurrence: HU)
  Receive Date: 20181217
  Receipt Date: 20181217
  Transmission Date: 20190205
  Serious: Yes (Hospitalization)
  Sender: FDA-Public Use
  Company Number: HU-SA-2018SA338710

PATIENT
  Age: 75 Year
  Sex: Female

DRUGS (8)
  1. DOCETAXEL. [Suspect]
     Active Substance: DOCETAXEL
     Dosage: 75 MG/M2, ON DAY 8 OF EACH 21 DAY CYCLE
     Route: 042
     Dates: start: 20181030, end: 20181030
  2. GEMCITABINE HYDROCHLORIDE. [Suspect]
     Active Substance: GEMCITABINE HYDROCHLORIDE
     Indication: SOFT TISSUE SARCOMA
     Dosage: 900 MG/M2, ON DAY ONE AND EIGHT OF EACH 21 DAY CYCLE
     Route: 042
     Dates: start: 20171016, end: 20171016
  3. DOCETAXEL. [Suspect]
     Active Substance: DOCETAXEL
     Indication: SOFT TISSUE SARCOMA
     Dosage: 75 MG/M2, ON DAY 8 OF EACH 21 DAY CYCLE
     Route: 042
     Dates: start: 20171024, end: 20171024
  4. MEGACE [Concomitant]
     Active Substance: MEGESTROL ACETATE
     Indication: DECREASED APPETITE
     Dosage: UNK UNK, UNK
     Route: 065
     Dates: start: 20171220
  5. GEMCITABINE HYDROCHLORIDE. [Suspect]
     Active Substance: GEMCITABINE HYDROCHLORIDE
     Dosage: 900 MG/M2, ON DAY ONE AND EIGHT OF EACH 21 DAY CYCLE
     Route: 042
     Dates: start: 20181030, end: 20181030
  6. CLEXANE [Concomitant]
     Active Substance: ENOXAPARIN SODIUM
     Indication: PROPHYLAXIS
     Dosage: UNK UNK, UNK
     Route: 065
     Dates: start: 20180731
  7. MALTOFER FOL [Concomitant]
     Active Substance: FOLIC ACID\IRON POLYMALTOSE
     Indication: ANAEMIA
     Dosage: UNK UNK, UNK
     Route: 065
     Dates: start: 20180804
  8. THEOPHYLLINE SODIUM AMINOACETATE [Concomitant]
     Indication: BRADYCARDIA
     Dosage: UNK UNK, UNK
     Route: 065
     Dates: start: 2014

REACTIONS (2)
  - Erysipelas [Recovered/Resolved]
  - Enterocolitis [Recovered/Resolved]

NARRATIVE: CASE EVENT DATE: 20181109
